FAERS Safety Report 9300131 (Version 2)
Quarter: 2013Q2

REPORT INFORMATION
  Report Type: Spontaneous
  Country: US (occurrence: US)
  Receive Date: 20130521
  Receipt Date: 20130619
  Transmission Date: 20140414
  Serious: No
  Sender: FDA-Public Use
  Company Number: US-ROXANE LABORATORIES, INC.-2013-RO-00812RO

PATIENT
  Sex: Female

DRUGS (1)
  1. IPRATROPIUM BROMIDE NASAL SOLUTION, 0.06% [Suspect]
     Indication: NASOPHARYNGITIS
     Route: 045
     Dates: start: 20130509, end: 20130510

REACTIONS (4)
  - Nasal congestion [Not Recovered/Not Resolved]
  - Drug ineffective [Not Recovered/Not Resolved]
  - Headache [Unknown]
  - Product quality issue [Not Recovered/Not Resolved]
